FAERS Safety Report 8689217 (Version 3)
Quarter: 2014Q4

REPORT INFORMATION
  Report Type: Spontaneous
  Country: US (occurrence: US)
  Receive Date: 20120727
  Receipt Date: 20141117
  Transmission Date: 20150529
  Serious: No
  Sender: FDA-Public Use
  Company Number: US-ASTRAZENECA-2012SE00722

PATIENT
  Age: 44 Year
  Sex: Female
  Weight: 72.6 kg

DRUGS (5)
  1. LYRICA [Suspect]
     Active Substance: PREGABALIN
     Indication: FIBROMYALGIA
     Route: 048
  2. SEROQUEL XR [Suspect]
     Active Substance: QUETIAPINE FUMARATE
     Indication: DEPRESSION
     Route: 048
     Dates: end: 2014
  3. DULERA [Concomitant]
     Active Substance: FORMOTEROL FUMARATE DIHYDRATE\MOMETASONE FUROATE
     Indication: ASTHMA
     Route: 055
  4. SEROQUEL XR [Suspect]
     Active Substance: QUETIAPINE FUMARATE
     Indication: SLEEP DISORDER
     Route: 048
     Dates: end: 2014
  5. ULTRACET [Concomitant]
     Active Substance: ACETAMINOPHEN\TRAMADOL HYDROCHLORIDE
     Indication: BACK DISORDER
     Dosage: BID
     Route: 048

REACTIONS (17)
  - Crying [Unknown]
  - Anger [Unknown]
  - Withdrawal syndrome [Unknown]
  - Aggression [Unknown]
  - Drug dose omission [Not Recovered/Not Resolved]
  - Limb injury [Unknown]
  - Wound infection [Unknown]
  - Insomnia [Not Recovered/Not Resolved]
  - Product use issue [Unknown]
  - Anxiety [Unknown]
  - Joint injury [Unknown]
  - Weight decreased [Recovering/Resolving]
  - Weight increased [Unknown]
  - Mood swings [Unknown]
  - Pain [Unknown]
  - Frustration [Unknown]
  - Hypertension [Unknown]

NARRATIVE: CASE EVENT DATE: 201105
